FAERS Safety Report 7381785-1 (Version None)
Quarter: 2011Q1

REPORT INFORMATION
  Report Type: 
  Country: None (occurrence: None)
  Receive Date: 20110329
  Receipt Date: 20101021
  Transmission Date: 20110831
  Serious: Yes (Hospitalization, Other)
  Sender: FDA-Public Use
  Company Number: US-BAYER-200938773NA

PATIENT
  Sex: Female
  Weight: 59 kg

DRUGS (4)
  1. YAZ [Suspect]
     Dosage: UNK
     Dates: start: 20081203, end: 20090129
  2. ZANAFLEX [Concomitant]
     Indication: HEADACHE
  3. ADVIL MIGRAINE LIQUI-GELS [Concomitant]
     Indication: HEADACHE
     Dosage: UNK
     Dates: start: 20060101
  4. YAZ [Suspect]
     Indication: PRODUCT USED FOR UNKNOWN INDICATION
     Dosage: UNK UNK, QD
     Route: 048
     Dates: start: 20080501, end: 20081003

REACTIONS (6)
  - CHOLELITHIASIS [None]
  - CHOLECYSTITIS ACUTE [None]
  - ABDOMINAL PAIN UPPER [None]
  - NAUSEA [None]
  - CHILLS [None]
  - CHOLECYSTITIS CHRONIC [None]
